FAERS Safety Report 8917997 (Version 2)
Quarter: 2013Q1

REPORT INFORMATION
  Report Type: Spontaneous
  Country: US (occurrence: US)
  Receive Date: 20121120
  Receipt Date: 20130103
  Transmission Date: 20140127
  Serious: No
  Sender: FDA-Public Use
  Company Number: US-ASTRAZENECA-2012SE16579

PATIENT
  Age: 56 Year
  Sex: Female

DRUGS (2)
  1. NEXIUM [Suspect]
     Route: 048
  2. TOPROL XL [Suspect]
     Route: 048

REACTIONS (6)
  - Aphagia [Unknown]
  - Heart rate increased [Unknown]
  - Hypertension [Unknown]
  - Dyspnoea [Unknown]
  - Headache [Unknown]
  - Drug dose omission [Unknown]
